FAERS Safety Report 13794365 (Version 1)
Quarter: 2017Q3

REPORT INFORMATION
  Report Type: Spontaneous
  Country: US (occurrence: US)
  Receive Date: 20170726
  Receipt Date: 20170726
  Transmission Date: 20171127
  Serious: No
  Sender: FDA-Public Use
  Company Number: US-PFIZER INC-2017322529

PATIENT
  Age: 36 Year
  Sex: Male
  Weight: 70.31 kg

DRUGS (2)
  1. MARIJUANA [Concomitant]
     Active Substance: CANNABIS SATIVA SUBSP. INDICA TOP
     Indication: ERECTILE DYSFUNCTION
  2. VIAGRA [Suspect]
     Active Substance: SILDENAFIL CITRATE
     Indication: ERECTILE DYSFUNCTION
     Dosage: 400 MG, UNK
     Dates: start: 20170722

REACTIONS (2)
  - Erection increased [Unknown]
  - Incorrect dose administered [Unknown]
